FAERS Safety Report 17952623 (Version 1)
Quarter: 2020Q2

REPORT INFORMATION
  Report Type: Other
  Country: CN (occurrence: CN)
  Receive Date: 20200626
  Receipt Date: 20200626
  Transmission Date: 20200714
  Serious: Yes (Death, Life-Threatening, Hospitalization)
  Sender: FDA-Public Use
  Company Number: CN-NOSTRUM LABORATORIES, INC.-2086731

PATIENT
  Age: 55 Year
  Sex: Female

DRUGS (2)
  1. CLARITHROMYCIN EXTENDED RELEASE [Suspect]
     Active Substance: CLARITHROMYCIN
     Indication: PNEUMONIA
     Route: 048
  2. COLCHICINE. [Interacting]
     Active Substance: COLCHICINE
     Route: 048

REACTIONS (3)
  - Labelled drug-drug interaction medication error [Fatal]
  - Pancytopenia [Fatal]
  - Pneumonia aspiration [Fatal]
